FAERS Safety Report 6635459-2 (Version None)
Quarter: 2010Q1

REPORT INFORMATION
  Report Type: 
  Country: None (occurrence: None)
  Receive Date: 20100315
  Receipt Date: 20090324
  Transmission Date: 20100710
  Serious: No
  Sender: FDA-Public Use
  Company Number: US-ABBOTT-09P-163-0558477-00

PATIENT
  Sex: Female
  Weight: 89.892 kg

DRUGS (8)
  1. DEPAKOTE [Suspect]
     Indication: DEPRESSION
     Route: 048
     Dates: start: 20070301, end: 20070601
  2. LORAZEPAM [Concomitant]
     Indication: NERVOUSNESS
     Route: 048
  3. SEROQUEL [Concomitant]
     Indication: NERVOUSNESS
     Route: 048
  4. LISINOPRIL [Concomitant]
     Indication: HYPERTENSION
     Route: 048
  5. SENOKOT [Concomitant]
     Indication: DRUG USE FOR UNKNOWN INDICATION
  6. HYDROCHLOROTHIAZIDE [Concomitant]
     Indication: DIURETIC THERAPY
     Route: 048
  7. RANITIDINE [Concomitant]
     Indication: FLATULENCE
     Route: 048
  8. ISOSORBIDE [Concomitant]
     Indication: DRUG USE FOR UNKNOWN INDICATION

REACTIONS (1)
  - ALOPECIA [None]
